FAERS Safety Report 18867105 (Version 5)
Quarter: 2022Q4

REPORT INFORMATION
  Report Type: Report from Study
  Country: US (occurrence: None)
  Receive Date: 20210209
  Receipt Date: 20221128
  Transmission Date: 20230113
  Serious: Yes (Death, Hospitalization)
  Sender: FDA-Public Use
  Company Number: US-EISAI MEDICAL RESEARCH-EC-2021-087573

PATIENT
  Age: 73 Year
  Sex: Male
  Weight: 89 kg

DRUGS (4)
  1. LENVATINIB [Suspect]
     Active Substance: LENVATINIB
     Indication: Metastatic renal cell carcinoma
     Route: 048
     Dates: start: 20210101, end: 20210131
  2. LENVATINIB [Suspect]
     Active Substance: LENVATINIB
     Dosage: 20 MG; STRENGHT 200 MG, FREQUENCY OTHER
     Route: 042
     Dates: start: 20210101, end: 20210401
  3. PEMBROLIZUMAB [Suspect]
     Active Substance: PEMBROLIZUMAB
     Indication: Metastatic renal cell carcinoma
     Route: 041
     Dates: start: 20210121, end: 20210121
  4. PEMBROLIZUMAB [Suspect]
     Active Substance: PEMBROLIZUMAB
     Route: 041
     Dates: start: 20210401, end: 20210401

REACTIONS (4)
  - Clostridium difficile colitis [Fatal]
  - Enterocolitis bacterial [Unknown]
  - Sepsis [Unknown]
  - Ileus [Unknown]

NARRATIVE: CASE EVENT DATE: 20210101
